FAERS Safety Report 5719333-1 (Version None)
Quarter: 2008Q2

REPORT INFORMATION
  Report Type: 
  Country: None (occurrence: None)
  Receive Date: 20080428
  Receipt Date: 20080414
  Transmission Date: 20081010
  Serious: Yes (Hospitalization, Other)
  Sender: FDA-Public Use
  Company Number: US-ELI_LILLY_AND_COMPANY-US200804003401

PATIENT
  Sex: Male

DRUGS (2)
  1. FORTEO [Suspect]
     Dates: start: 20070101, end: 20080201
  2. FORTEO [Suspect]
     Dates: start: 20080201

REACTIONS (3)
  - FALL [None]
  - HIP FRACTURE [None]
  - WEIGHT BEARING DIFFICULTY [None]
